FAERS Safety Report 11534496 (Version 1)
Quarter: 2015Q3

REPORT INFORMATION
  Report Type: Spontaneous
  Country: IT (occurrence: IT)
  Receive Date: 20150922
  Receipt Date: 20150922
  Transmission Date: 20151125
  Serious: Yes (Other)
  Sender: FDA-Public Use
  Company Number: PHHY2015IT113173

PATIENT
  Age: 57 Year
  Sex: Female

DRUGS (3)
  1. 4-AMINOPYRIDINE [Concomitant]
     Active Substance: DALFAMPRIDINE
     Indication: FATIGUE
     Dosage: 4 MG, BID
     Route: 048
     Dates: start: 20141126, end: 20150818
  2. GILENYA [Suspect]
     Active Substance: FINGOLIMOD HYDROCHLORIDE
     Indication: MULTIPLE SCLEROSIS
     Dosage: 0.5 MG, QD
     Route: 048
     Dates: start: 20150120, end: 20150726
  3. DIBASE [Concomitant]
     Active Substance: CHOLECALCIFEROL
     Indication: VITAMIN D DEFICIENCY
     Dosage: 28 DRP, QW
     Route: 048
     Dates: start: 20150608

REACTIONS (1)
  - Lung adenocarcinoma [Unknown]

NARRATIVE: CASE EVENT DATE: 20150721
